FAERS Safety Report 6076189-8 (Version None)
Quarter: 2009Q1

REPORT INFORMATION
  Report Type: 
  Country: None (occurrence: None)
  Receive Date: 20090210
  Receipt Date: 20081010
  Transmission Date: 20090719
  Serious: No
  Sender: FDA-Public Use
  Company Number: 2007EU001374

PATIENT
  Age: 11 Year
  Sex: Male
  Weight: 46.7 kg

DRUGS (9)
  1. TACROLIMUS [Suspect]
     Indication: DERMATITIS ATOPIC
     Dosage: PRN, TOPICAL
     Route: 061
  2. XUSAL (LEVOCETIRIZINE DIHYDROCHLORIDE) [Concomitant]
  3. AURIDERM K2 (PHYTOMENADIONE) [Concomitant]
  4. ECURAL (MOMETASONE FUROATE) [Concomitant]
  5. DIPROGENTA (GENTAMICIN SULFATE, BETAMETHASONE DIPROPIONATE) [Concomitant]
  6. ADVANTAN (METHYLPREDNISOLONE ACEPONATE) [Concomitant]
  7. BALEUOVIT GEL [Concomitant]
  8. KREOTOP [Concomitant]
  9. METHYLPHENIDATE HCL [Concomitant]

REACTIONS (3)
  - CELLULITIS [None]
  - PHLEBITIS [None]
  - PRURITUS [None]
